FAERS Safety Report 7429116-2 (Version None)
Quarter: 2011Q2

REPORT INFORMATION
  Report Type: 
  Country: None (occurrence: None)
  Receive Date: 20110421
  Receipt Date: 20110415
  Transmission Date: 20111010
  Serious: Yes (Hospitalization)
  Sender: FDA-Public Use
  Company Number: PHHY2011GR29511

PATIENT
  Sex: Female

DRUGS (4)
  1. METHYLPREDNISOLONE [Suspect]
     Dosage: 4 MG, 1XDAY
     Dates: start: 20070101
  2. SANDIMMUNE [Suspect]
     Dosage: 50 MG, BID
     Route: 048
     Dates: start: 20070101
  3. LEVOTHYROXINE SODIUM [Concomitant]
     Dosage: UNK
  4. HYDROXYCHLOROQUINE SULFATE [Suspect]
     Dosage: 200 MG, 1X/DAY
     Route: 048
     Dates: start: 20090101

REACTIONS (4)
  - URINARY TRACT PAIN [None]
  - PYREXIA [None]
  - URINARY TRACT INFECTION [None]
  - BACK PAIN [None]
